FAERS Safety Report 25467886 (Version 1)
Quarter: 2025Q2

REPORT INFORMATION
  Report Type: Report from Study
  Country: US (occurrence: US)
  Receive Date: 20250623
  Receipt Date: 20250623
  Transmission Date: 20250716
  Serious: Yes (Other)
  Sender: BAYER HEALTHCARE PHARMACEUTICALS INC.
  Company Number: US-BAYER-2025A080007

PATIENT
  Age: 63 Year
  Sex: Male

DRUGS (8)
  1. NUBEQA [Suspect]
     Active Substance: DAROLUTAMIDE
     Indication: Prostate cancer
     Dosage: 600 MG, BID
     Route: 048
     Dates: start: 20240416
  2. NUBEQA [Suspect]
     Active Substance: DAROLUTAMIDE
     Indication: Prostate cancer
     Dosage: 300 MG, BID
     Route: 048
  3. VITAMINS [Concomitant]
     Active Substance: VITAMINS
  4. DIAZEPAM [Concomitant]
     Active Substance: DIAZEPAM
  5. ELIGARD [Concomitant]
     Active Substance: LEUPROLIDE ACETATE
  6. LUPRON [Concomitant]
     Active Substance: LEUPROLIDE ACETATE
  7. PEPTO-BISMOL [Concomitant]
     Active Substance: BISMUTH SUBSALICYLATE
  8. ZOMETA [Concomitant]
     Active Substance: ZOLEDRONIC ACID

REACTIONS (2)
  - Arrhythmia [Unknown]
  - Headache [Recovering/Resolving]
